FAERS Safety Report 7504275-1 (Version None)
Quarter: 2011Q2

REPORT INFORMATION
  Report Type: 
  Country: None (occurrence: None)
  Receive Date: 20110525
  Receipt Date: 20110518
  Transmission Date: 20111010
  Serious: Yes (Hospitalization, Other)
  Sender: FDA-Public Use
  Company Number: IT-ROXANE LABORATORIES, INC.-2011-RO-00690RO

PATIENT
  Age: 48 Year
  Sex: Female

DRUGS (2)
  1. FUROSEMIDE [Suspect]
     Indication: SYSTOLIC HYPERTENSION
     Dosage: 25 MG
  2. CITALOPRAM HYDROBROMIDE [Suspect]
     Indication: MAJOR DEPRESSION
     Dosage: 40 MG

REACTIONS (7)
  - VENTRICULAR TACHYCARDIA [None]
  - LONG QT SYNDROME [None]
  - INFLUENZA LIKE ILLNESS [None]
  - TORSADE DE POINTES [None]
  - HYPOKALAEMIA [None]
  - DIARRHOEA [None]
  - HYPOCHLORAEMIA [None]
